FAERS Safety Report 13180935 (Version 1)
Quarter: 2017Q1

REPORT INFORMATION
  Report Type: Spontaneous
  Country: US (occurrence: US)
  Receive Date: 20170202
  Receipt Date: 20170202
  Transmission Date: 20170428
  Serious: No
  Sender: FDA-Public Use
  Company Number: US-SMITH AND NEPHEW, INC-2016SMT00081

PATIENT
  Age: 82 Year
  Sex: Female
  Weight: 88.89 kg

DRUGS (5)
  1. WATER PILLS [Concomitant]
     Active Substance: UNSPECIFIED INGREDIENT
  2. INSULIN [Concomitant]
     Active Substance: INSULIN NOS
  3. REGRANEX [Suspect]
     Active Substance: BECAPLERMIN
     Indication: WOUND
     Dosage: UNK, 1X/DAY
     Route: 061
     Dates: start: 20160114
  4. HEART PILLS [Concomitant]
  5. VITAMIN C [Concomitant]
     Active Substance: ASCORBIC ACID

REACTIONS (3)
  - Wound complication [Unknown]
  - Application site inflammation [Unknown]
  - Application site pain [Unknown]

NARRATIVE: CASE EVENT DATE: 20160121
